FAERS Safety Report 10438955 (Version 2)
Quarter: 2014Q3

REPORT INFORMATION
  Report Type: Spontaneous
  Country: US (occurrence: US)
  Receive Date: 20140908
  Receipt Date: 20140908
  Transmission Date: 20150326
  Serious: No
  Sender: FDA-Public Use
  Company Number: US-BRISTOL-MYERS SQUIBB COMPANY-19177641

PATIENT
  Sex: Female

DRUGS (1)
  1. ABILIFY [Suspect]
     Active Substance: ARIPIPRAZOLE
     Dosage: 1 DF:1/2 TAB OF 20 MG TABLET.
     Route: 048
     Dates: start: 201308

REACTIONS (5)
  - Somnolence [Unknown]
  - Wrong technique in drug usage process [Unknown]
  - Nausea [Unknown]
  - Drug ineffective [Unknown]
  - Fatigue [Unknown]
